FAERS Safety Report 7774412-2 (Version None)
Quarter: 2011Q3

REPORT INFORMATION
  Report Type: 
  Country: None (occurrence: None)
  Receive Date: 20110923
  Receipt Date: 20110916
  Transmission Date: 20111222
  Serious: Yes (Hospitalization)
  Sender: FDA-Public Use
  Company Number: AU-B.I. PHARMACEUTICALS,INC./RIDGEFIELD-2011-AU-01109AU

PATIENT
  Sex: Male
  Weight: 81.5 kg

DRUGS (9)
  1. LANOXIN [Concomitant]
     Dosage: 62.5 MG
  2. INSPRA [Concomitant]
     Dosage: 50 MG
  3. OXYCONTIN [Concomitant]
     Dosage: 20 MG
  4. PRADAXA [Suspect]
     Indication: ATRIAL FIBRILLATION
     Dosage: 220 MG
     Dates: start: 20110708, end: 20110801
  5. METFORMIN HCL [Concomitant]
     Dosage: 500 MG
  6. AMIODARONE HCL [Concomitant]
     Dosage: 200 MG
  7. SIMVASTATIN [Concomitant]
     Dosage: 40 MG
  8. CARVEDILOL [Concomitant]
     Dosage: 25 MG
  9. PRISTIQ [Concomitant]

REACTIONS (1)
  - CEREBROVASCULAR ACCIDENT [None]
